FAERS Safety Report 9447377 (Version 2)
Quarter: 2013Q4

REPORT INFORMATION
  Report Type: Spontaneous
  Country: US (occurrence: US)
  Receive Date: 20130808
  Receipt Date: 20131108
  Transmission Date: 20140711
  Serious: Yes (Disabling, Other)
  Sender: FDA-Public Use
  Company Number: US-009507513-1308USA000457

PATIENT
  Sex: Male

DRUGS (3)
  1. ZOCOR [Suspect]
     Indication: BLOOD CHOLESTEROL
     Dosage: 40 MG, UNK
     Route: 048
     Dates: start: 201009
  2. ZOCOR [Suspect]
     Dosage: 80 MG, UNK
     Route: 048
     Dates: end: 201206
  3. GEMFIBROZIL [Suspect]
     Dosage: 800 MG, UNK

REACTIONS (7)
  - Coronary arterial stent insertion [Unknown]
  - Wheelchair user [Not Recovered/Not Resolved]
  - Hepatorenal failure [Not Recovered/Not Resolved]
  - Myopathy [Not Recovered/Not Resolved]
  - Gait disturbance [Not Recovered/Not Resolved]
  - Chromaturia [Not Recovered/Not Resolved]
  - Muscular weakness [Not Recovered/Not Resolved]
